FAERS Safety Report 21990759 (Version 1)
Quarter: 2023Q1

REPORT INFORMATION
  Report Type: Spontaneous
  Country: US (occurrence: US)
  Receive Date: 20230214
  Receipt Date: 20230214
  Transmission Date: 20230417
  Serious: Yes (Other)
  Sender: FDA-Public Use
  Company Number: US-ANIPHARMA-2022-US-027367

PATIENT
  Age: 57 Year
  Sex: Female

DRUGS (1)
  1. CORTICOTROPIN [Suspect]
     Active Substance: CORTICOTROPIN
     Indication: Rheumatoid arthritis
     Dosage: INJECT 80 UNITS (1ML) INTRAMUSCULARLY TWICE WEEKLY
     Route: 058

REACTIONS (5)
  - Rheumatoid arthritis [Not Recovered/Not Resolved]
  - Underdose [Unknown]
  - Product administration error [Unknown]
  - Condition aggravated [Not Recovered/Not Resolved]
  - Drug ineffective [Not Recovered/Not Resolved]

NARRATIVE: CASE EVENT DATE: 20221101
